FAERS Safety Report 7811240-3 (Version None)
Quarter: 2011Q4

REPORT INFORMATION
  Report Type: 
  Country: None (occurrence: None)
  Receive Date: 20111013
  Receipt Date: 20110929
  Transmission Date: 20120403
  Serious: Yes (Other)
  Sender: FDA-Public Use
  Company Number: NL-AMGEN-NLDSP2011051716

PATIENT
  Age: 45 Year
  Sex: Male

DRUGS (6)
  1. ENBREL [Suspect]
     Indication: RHEUMATOID ARTHRITIS
     Dosage: 50 MG, WEEKLY
     Dates: start: 20081101
  2. ARAVA [Concomitant]
     Dosage: UNK
  3. PREDNISONE [Concomitant]
     Dosage: UNK
  4. PLAQUENIL [Suspect]
     Dosage: UNK
     Dates: end: 20101101
  5. CALCIUM CARBONATE [Concomitant]
     Dosage: UNK
  6. DOMPERIDONE [Concomitant]
     Dosage: UNK

REACTIONS (1)
  - RETINAL DETACHMENT [None]
